FAERS Safety Report 5332402-3 (Version None)
Quarter: 2007Q2

REPORT INFORMATION
  Report Type: 
  Country: None (occurrence: None)
  Receive Date: 20070522
  Receipt Date: 20070522
  Transmission Date: 20071010
  Serious: Yes (Hospitalization, Other)
  Sender: FDA-Public Use
  Company Number: None

PATIENT
  Age: 26 Year
  Sex: Female

DRUGS (2)
  1. YASMIN [Suspect]
     Indication: CONTRACEPTION
     Dosage: 1 TABLET DAILY ORAL
     Route: 048
  2. IMITREX [Suspect]
     Indication: MIGRAINE

REACTIONS (13)
  - CEREBROVASCULAR ACCIDENT [None]
  - COORDINATION ABNORMAL [None]
  - DIPLOPIA [None]
  - DIZZINESS [None]
  - DYSARTHRIA [None]
  - FACIAL PARESIS [None]
  - HAEMATOCRIT DECREASED [None]
  - HEADACHE [None]
  - MOVEMENT DISORDER [None]
  - PARAESTHESIA [None]
  - TINNITUS [None]
  - VERTIGO [None]
  - VOMITING [None]
